FAERS Safety Report 10999028 (Version 1)
Quarter: 2015Q2

REPORT INFORMATION
  Report Type: Spontaneous
  Country: US (occurrence: US)
  Receive Date: 20150408
  Receipt Date: 20150408
  Transmission Date: 20150821
  Serious: No
  Sender: FDA-Public Use
  Company Number: US-SA-2014SA058394

PATIENT
  Age: 59 Year
  Sex: Male
  Weight: 81 kg

DRUGS (1)
  1. ALLEGRA [Suspect]
     Active Substance: FEXOFENADINE HYDROCHLORIDE
     Indication: MULTIPLE ALLERGIES
     Route: 048
     Dates: start: 20140426, end: 20140428

REACTIONS (3)
  - Overdose [Unknown]
  - Extra dose administered [Unknown]
  - Drug ineffective [Unknown]
